FAERS Safety Report 4901573-2 (Version None)
Quarter: 2006Q1

REPORT INFORMATION
  Report Type: 
  Country: None (occurrence: None)
  Receive Date: 20060206
  Receipt Date: 20050412
  Transmission Date: 20060701
  Serious: Yes (Death)
  Sender: FDA-Public Use
  Company Number: US-BRISTOL-MYERS SQUIBB COMPANY-12930467

PATIENT
  Age: 46 Year
  Sex: Female

DRUGS (3)
  1. PARAPLATIN [Suspect]
     Indication: BREAST CANCER METASTATIC
     Dates: start: 20041026, end: 20041026
  2. TAXOL [Suspect]
     Indication: BREAST CANCER METASTATIC
     Dates: start: 20041026, end: 20041026
  3. TAXOL [Suspect]
     Dates: start: 20041026, end: 20041026

REACTIONS (1)
  - MALIGNANT NEOPLASM PROGRESSION [None]
